FAERS Safety Report 6091798-8 (Version None)
Quarter: 2009Q1

REPORT INFORMATION
  Report Type: 
  Country: None (occurrence: None)
  Receive Date: 20090225
  Receipt Date: 20080728
  Transmission Date: 20090719
  Serious: No
  Sender: FDA-Public Use
  Company Number: A0735604A

PATIENT
  Age: 25 Year
  Sex: Female
  Weight: 66.8 kg

DRUGS (1)
  1. VALTREX [Suspect]
     Indication: GENITAL HERPES
     Dosage: 3G PER DAY
     Route: 048

REACTIONS (4)
  - ERYTHEMA [None]
  - HEADACHE [None]
  - LYME DISEASE [None]
  - PAIN [None]
